FAERS Safety Report 18001338 (Version 2)
Quarter: 2020Q3

REPORT INFORMATION
  Report Type: Report from Study
  Country: AR (occurrence: AR)
  Receive Date: 20200709
  Receipt Date: 20200725
  Transmission Date: 20201103
  Serious: Yes (Death, Hospitalization, Other)
  Sender: FDA-Public Use
  Company Number: NVSC2019AR025281

PATIENT
  Age: 49 Year
  Sex: Male

DRUGS (2)
  1. TAFINLAR [Suspect]
     Active Substance: DABRAFENIB MESYLATE
     Indication: METASTATIC MALIGNANT MELANOMA
     Dosage: 300 MG, QD
     Route: 065
     Dates: start: 20190618, end: 20191001
  2. MEKINIST [Suspect]
     Active Substance: TRAMETINIB DIMETHYL SULFOXIDE
     Indication: METASTATIC MALIGNANT MELANOMA
     Dosage: 2 MG, QD
     Route: 065
     Dates: start: 20190701, end: 20191001

REACTIONS (4)
  - Dizziness [Fatal]
  - Vomiting [Fatal]
  - Central nervous system lesion [Fatal]
  - Drug ineffective [Fatal]

NARRATIVE: CASE EVENT DATE: 201909
